FAERS Safety Report 21757922 (Version 1)
Quarter: 2022Q4

REPORT INFORMATION
  Report Type: Spontaneous
  Country: US (occurrence: US)
  Receive Date: 20221221
  Receipt Date: 20221221
  Transmission Date: 20230112
  Serious: No
  Sender: FDA-Public Use
  Company Number: US-CELLTRION INC.-2022US004634

PATIENT

DRUGS (1)
  1. TRUXIMA [Suspect]
     Active Substance: RITUXIMAB-ABBS
     Indication: Vitreous adhesions
     Dosage: 1000 MG AS NEEDED
     Dates: start: 20220321

REACTIONS (2)
  - Vitreous adhesions [Unknown]
  - Off label use [Unknown]
